FAERS Safety Report 6756531-2 (Version None)
Quarter: 2010Q2

REPORT INFORMATION
  Report Type: 
  Country: None (occurrence: None)
  Receive Date: 20100604
  Receipt Date: 20100527
  Transmission Date: 20101027
  Serious: Yes (Other)
  Sender: FDA-Public Use
  Company Number: B0658958A

PATIENT
  Age: 47 Year
  Sex: Female
  Weight: 58 kg

DRUGS (4)
  1. TRIZIVIR [Suspect]
     Indication: HIV INFECTION
     Route: 048
  2. URBASON [Suspect]
     Route: 030
     Dates: end: 20100424
  3. METHADONE [Suspect]
     Route: 048
     Dates: start: 19920101
  4. NOLOTIL [Concomitant]
     Route: 048
     Dates: start: 20100414

REACTIONS (1)
  - WITHDRAWAL SYNDROME [None]
